FAERS Safety Report 4337168-1 (Version None)
Quarter: 2004Q2

REPORT INFORMATION
  Report Type: 
  Country: None (occurrence: None)
  Receive Date: 20040407
  Receipt Date: 20040328
  Transmission Date: 20050107
  Serious: No
  Sender: FDA-Public Use
  Company Number: 04P-163-0255061-00

PATIENT
  Age: 43 Year
  Sex: Female

DRUGS (1)
  1. MERIDIA [Suspect]

REACTIONS (3)
  - ABDOMINAL PAIN [None]
  - POST PROCEDURAL COMPLICATION [None]
  - PROCTALGIA [None]
